FAERS Safety Report 6430271-1 (Version None)
Quarter: 2009Q4

REPORT INFORMATION
  Report Type: 
  Country: None (occurrence: None)
  Receive Date: 20091104
  Receipt Date: 20091104
  Transmission Date: 20100525
  Serious: Yes (Hospitalization)
  Sender: FDA-Public Use
  Company Number: None

PATIENT
  Age: 51 Year
  Sex: Male
  Weight: 102.0593 kg

DRUGS (13)
  1. MELOXICAM [Suspect]
     Indication: PAIN
     Dosage: 1 TABLET DAILY PRN PO
     Route: 048
     Dates: start: 20090805, end: 20090825
  2. OXYBUTININ 5MG [Suspect]
     Indication: HYPERTONIC BLADDER
     Dosage: 1-2 TABLETS DAILY PO
     Route: 048
     Dates: start: 20081001, end: 20090825
  3. SIMVASTATIN [Concomitant]
  4. LIPITOR [Concomitant]
  5. CARVEDILOL [Concomitant]
  6. ASPIRIN [Concomitant]
  7. CLONAZEPAM [Concomitant]
  8. OXYCODONE HCL AND ACETAMINOPHEN [Concomitant]
  9. AMITRIPTYLINE [Concomitant]
  10. FLUOXETINE [Concomitant]
  11. OMEPRAZOLE [Concomitant]
  12. KETOROLAC TROMETHAMINE [Concomitant]
  13. CELECOXIB [Concomitant]

REACTIONS (3)
  - HYPERTONIC BLADDER [None]
  - PAIN [None]
  - RENAL TUBULAR NECROSIS [None]
